FAERS Safety Report 25255920 (Version 2)
Quarter: 2025Q2

REPORT INFORMATION
  Report Type: Spontaneous
  Country: US (occurrence: US)
  Receive Date: 20250430
  Receipt Date: 20250506
  Transmission Date: 20250716
  Serious: Yes (Hospitalization, Other)
  Sender: PFIZER
  Company Number: US-MLMSERVICE-20250418-PI485294-00117-1

PATIENT
  Age: 67 Year
  Sex: Male

DRUGS (45)
  1. METHYLPREDNISOLONE [Suspect]
     Active Substance: METHYLPREDNISOLONE
     Indication: Cytokine release syndrome
     Dosage: FREQ:12 H/1G TWICE DAILY (DAY +21)
  2. DEXAMETHASONE [Suspect]
     Active Substance: DEXAMETHASONE
     Indication: Cytokine release syndrome
     Dosage: 10 MG, 2X/DAY (FREQ:12 H; DAY +3, 10MG X2)
  3. DEXAMETHASONE [Suspect]
     Active Substance: DEXAMETHASONE
     Dosage: 10 MG, 4X/DAY (FREQ:6 H; DAY +13, 10 MG EVERY SIX HOURS)
  4. DEXAMETHASONE [Suspect]
     Active Substance: DEXAMETHASONE
     Dosage: 10 MG, 4X/DAY (FREQ:6 H; DAY +13, 10 MG EVERY SIX HOURS)
  5. ANAKINRA [Suspect]
     Active Substance: ANAKINRA
     Indication: Cytokine release syndrome
     Dosage: 200 MG, 4X/DAY (FREQ:6 H;200MG EVERY 6 HRS; DAY +21.)
  6. RUXOLITINIB [Suspect]
     Active Substance: RUXOLITINIB
     Indication: Cytokine release syndrome
     Dosage: 10 MG, 2X/DAY (FREQ:12 H;10MG TWICE DAILY; DAY +21)
  7. GAMIFANT [Suspect]
     Active Substance: EMAPALUMAB-LZSG
     Indication: Cytokine release syndrome
  8. TOCILIZUMAB [Suspect]
     Active Substance: TOCILIZUMAB
     Indication: Cytokine release syndrome
  9. TOCILIZUMAB [Suspect]
     Active Substance: TOCILIZUMAB
  10. TOCILIZUMAB [Suspect]
     Active Substance: TOCILIZUMAB
  11. TOCILIZUMAB [Suspect]
     Active Substance: TOCILIZUMAB
  12. SILTUXIMAB [Suspect]
     Active Substance: SILTUXIMAB
     Indication: Cytokine release syndrome
  13. RIMIDUCID [Concomitant]
     Active Substance: RIMIDUCID
     Indication: Lymphocyte adoptive therapy
     Dosage: WEEKLY (WEEKLY 1ST DOSE DAY+11, 2ND DAY+18)
  14. LEVETIRACETAM [Concomitant]
     Active Substance: LEVETIRACETAM
  15. NOREPINEPHRINE [Concomitant]
     Active Substance: NOREPINEPHRINE
     Indication: Vasopressive therapy
  16. NOREPINEPHRINE [Concomitant]
     Active Substance: NOREPINEPHRINE
  17. NOREPINEPHRINE [Concomitant]
     Active Substance: NOREPINEPHRINE
  18. NOREPINEPHRINE [Concomitant]
     Active Substance: NOREPINEPHRINE
  19. NOREPINEPHRINE [Concomitant]
     Active Substance: NOREPINEPHRINE
  20. NOREPINEPHRINE [Concomitant]
     Active Substance: NOREPINEPHRINE
  21. NOREPINEPHRINE [Concomitant]
     Active Substance: NOREPINEPHRINE
  22. NOREPINEPHRINE [Concomitant]
     Active Substance: NOREPINEPHRINE
  23. NOREPINEPHRINE [Concomitant]
     Active Substance: NOREPINEPHRINE
  24. NOREPINEPHRINE [Concomitant]
     Active Substance: NOREPINEPHRINE
  25. NOREPINEPHRINE [Concomitant]
     Active Substance: NOREPINEPHRINE
  26. NOREPINEPHRINE [Concomitant]
     Active Substance: NOREPINEPHRINE
  27. NOREPINEPHRINE [Concomitant]
     Active Substance: NOREPINEPHRINE
  28. NOREPINEPHRINE [Concomitant]
     Active Substance: NOREPINEPHRINE
  29. NOREPINEPHRINE [Concomitant]
     Active Substance: NOREPINEPHRINE
  30. NOREPINEPHRINE [Concomitant]
     Active Substance: NOREPINEPHRINE
  31. NOREPINEPHRINE [Concomitant]
     Active Substance: NOREPINEPHRINE
  32. NOREPINEPHRINE [Concomitant]
     Active Substance: NOREPINEPHRINE
  33. NOREPINEPHRINE [Concomitant]
     Active Substance: NOREPINEPHRINE
  34. VASOPRESSIN [Concomitant]
     Active Substance: VASOPRESSIN
     Indication: Vasopressive therapy
  35. VASOPRESSIN [Concomitant]
     Active Substance: VASOPRESSIN
  36. VASOPRESSIN [Concomitant]
     Active Substance: VASOPRESSIN
  37. VASOPRESSIN [Concomitant]
     Active Substance: VASOPRESSIN
  38. VASOPRESSIN [Concomitant]
     Active Substance: VASOPRESSIN
  39. PHENYLEPHRINE [Concomitant]
     Active Substance: PHENYLEPHRINE
     Indication: Vasopressive therapy
  40. PHENYLEPHRINE [Concomitant]
     Active Substance: PHENYLEPHRINE
  41. PHENYLEPHRINE [Concomitant]
     Active Substance: PHENYLEPHRINE
  42. PHENYLEPHRINE [Concomitant]
     Active Substance: PHENYLEPHRINE
  43. ANGIOTENSIN II [Concomitant]
     Active Substance: ANGIOTENSIN II
     Indication: Vasopressive therapy
  44. ANGIOTENSIN II [Concomitant]
     Active Substance: ANGIOTENSIN II
  45. ANGIOTENSIN II [Concomitant]
     Active Substance: ANGIOTENSIN II

REACTIONS (3)
  - Enterococcal bacteraemia [Unknown]
  - Off label use [Unknown]
  - Drug ineffective for unapproved indication [Unknown]
